FAERS Safety Report 4509897-8 (Version None)
Quarter: 2004Q4

REPORT INFORMATION
  Report Type: 
  Country: None (occurrence: None)
  Receive Date: 20041119
  Receipt Date: 20041101
  Transmission Date: 20050328
  Serious: Yes (Other)
  Sender: FDA-Public Use
  Company Number: USA041182727

PATIENT
  Age: 14 Year
  Sex: Female
  Weight: 55 kg

DRUGS (2)
  1. STRATTERA [Suspect]
     Indication: ATTENTION DEFICIT/HYPERACTIVITY DISORDER
     Dosage: 40 MG DAY
     Dates: start: 20030201
  2. WELLBUTRIN [Concomitant]

REACTIONS (5)
  - CONVULSION [None]
  - MEDICATION ERROR [None]
  - MULTIPLE DRUG OVERDOSE INTENTIONAL [None]
  - SPEECH DISORDER [None]
  - TREATMENT NONCOMPLIANCE [None]
